FAERS Safety Report 7974219-7 (Version None)
Quarter: 2011Q4

REPORT INFORMATION
  Report Type: 
  Country: None (occurrence: None)
  Receive Date: 20111209
  Receipt Date: 20111129
  Transmission Date: 20120403
  Serious: Yes (Other)
  Sender: FDA-Public Use
  Company Number: IPC201111-003236

PATIENT
  Sex: Female

DRUGS (3)
  1. CYCLOBENZAPRINE [Concomitant]
  2. PROPRANOLOL [Suspect]
     Indication: MITRAL VALVE PROLAPSE
     Dosage: 10 MG, FOUR TIMES A DAY
     Dates: start: 20080101
  3. PROPRANOLOL HYDROCHLORIDE [Suspect]
     Indication: MITRAL VALVE PROLAPSE
     Dosage: 10 MG, FOUR TIMES A DAY
     Dates: start: 20080101

REACTIONS (7)
  - THROMBOSIS [None]
  - EYE DISORDER [None]
  - PALPITATIONS [None]
  - DRUG INEFFECTIVE [None]
  - PRODUCT SUBSTITUTION ISSUE [None]
  - ANGINA PECTORIS [None]
  - ARRHYTHMIA [None]
